FAERS Safety Report 7410810-4 (Version None)
Quarter: 2011Q2

REPORT INFORMATION
  Report Type: 
  Country: None (occurrence: None)
  Receive Date: 20110413
  Receipt Date: 20110405
  Transmission Date: 20111010
  Serious: No
  Sender: FDA-Public Use
  Company Number: US-PFIZER INC-2011075730

PATIENT
  Sex: Female
  Weight: 56.689 kg

DRUGS (1)
  1. ADVIL LIQUI-GELS [Suspect]
     Indication: TOOTHACHE
     Dosage: 200 MG, DAILY
     Route: 048
     Dates: start: 20110401

REACTIONS (2)
  - EXPIRED DRUG ADMINISTERED [None]
  - DRUG INEFFECTIVE [None]
